FAERS Safety Report 7515632-1 (Version None)
Quarter: 2011Q2

REPORT INFORMATION
  Report Type: 
  Country: None (occurrence: None)
  Receive Date: 20110601
  Receipt Date: 20100729
  Transmission Date: 20111010
  Serious: Yes (Other)
  Sender: FDA-Public Use
  Company Number: US-PFIZER INC-2010095891

PATIENT
  Sex: Male
  Weight: 87.5 kg

DRUGS (3)
  1. SIMVASTATIN [Concomitant]
     Indication: LOW DENSITY LIPOPROTEIN ABNORMAL
     Dosage: UNK
  2. CHANTIX [Suspect]
     Indication: SMOKING CESSATION THERAPY
     Dosage: 0.5 MG, 1X/DAY
     Route: 048
     Dates: start: 20100720
  3. CHANTIX [Suspect]
     Dosage: 1 MG, 2X/DAY

REACTIONS (3)
  - HEADACHE [None]
  - MUSCULOSKELETAL STIFFNESS [None]
  - DEPRESSION [None]
